FAERS Safety Report 9202016 (Version 1)
Quarter: 2013Q2

REPORT INFORMATION
  Report Type: Report from Study
  Country: CA (occurrence: CA)
  Receive Date: 20130401
  Receipt Date: 20130401
  Transmission Date: 20140414
  Serious: Yes (Death, Other)
  Sender: FDA-Public Use
  Company Number: CA-ROCHE-763300

PATIENT
  Age: 60 Year
  Sex: Male
  Weight: 83 kg

DRUGS (13)
  1. RITUXAN [Suspect]
     Indication: GRANULOMATOSIS WITH POLYANGIITIS
     Route: 042
     Dates: start: 20100301, end: 20100322
  2. COUMADIN [Concomitant]
  3. PREDNISONE [Concomitant]
  4. CORTISONE [Concomitant]
  5. METFORMIN [Concomitant]
  6. PANTOLOC [Concomitant]
  7. VENTOLIN [Concomitant]
  8. CARBOCAL [Concomitant]
     Dosage: DRUG:CARBCAL
     Route: 065
  9. FOSAMAX [Concomitant]
  10. CLONAZEPAM [Concomitant]
     Dosage: DRUG:CLOZAPAM
     Route: 065
  11. DIPHENHYDRAMINE HCL [Concomitant]
     Indication: PREMEDICATION
     Route: 048
     Dates: start: 20100301, end: 20100322
  12. ACETAMINOPHEN [Concomitant]
     Indication: PREMEDICATION
     Route: 048
     Dates: start: 20100301, end: 20100322
  13. METHYLPREDNISOLONE [Concomitant]
     Indication: PREMEDICATION
     Route: 042
     Dates: start: 20100301, end: 20100322

REACTIONS (4)
  - Back pain [Recovered/Resolved]
  - Hyperaesthesia [Recovered/Resolved]
  - Tinnitus [Recovered/Resolved]
  - Death [Fatal]
